FAERS Safety Report 16992306 (Version 1)
Quarter: 2019Q4

REPORT INFORMATION
  Report Type: Spontaneous
  Country: US (occurrence: US)
  Receive Date: 20190920
  Receipt Date: 20190920
  Transmission Date: 20200122
  Serious: Yes (Other)
  Sender: FDA-Public Use
  Company Number: None

PATIENT
  Age: 65 Year
  Sex: Female

DRUGS (1)
  1. OPSUMIT [Suspect]
     Active Substance: MACITENTAN
     Indication: PULMONARY ARTERIAL HYPERTENSION
     Route: 048
     Dates: start: 201807

REACTIONS (5)
  - Pulmonary congestion [None]
  - Oropharyngeal pain [None]
  - Nasal congestion [None]
  - Cough [None]
  - Bronchitis [None]

NARRATIVE: CASE EVENT DATE: 20190918
